FAERS Safety Report 19484294 (Version 2)
Quarter: 2022Q1

REPORT INFORMATION
  Report Type: Other
  Country: US (occurrence: US)
  Receive Date: 20210701
  Receipt Date: 20220322
  Transmission Date: 20220423
  Serious: Yes (Other)
  Sender: FDA-Public Use
  Company Number: US-GLAUKOS-AVE-2021-0171-AE

PATIENT
  Age: 53 Year
  Sex: Female
  Weight: 81.720 kg

DRUGS (16)
  1. PHOTREXA VISCOUS [Suspect]
     Active Substance: RIBOFLAVIN 5^-PHOSPHATE SODIUM
     Indication: Corneal disorder
     Dosage: ONE DROP OF PHOTREXA VISCOUS WAS GIVEN EVERY 2 MINUTES FOR 30 MINUTES, RIGHT EYE. 30 DOSES
     Route: 047
     Dates: start: 20190913, end: 20190913
  2. PHOTREXA [Suspect]
     Active Substance: RIBOFLAVIN 5^-PHOSPHATE SODIUM
     Indication: Corneal disorder
     Dosage: RIGHT EYE. 30 DOSES
     Route: 047
     Dates: start: 20190913, end: 20190913
  3. DEVICE [Suspect]
     Active Substance: DEVICE
     Indication: Corneal disorder
     Dosage: 30 MINUTES
     Route: 047
     Dates: start: 20190913, end: 20190913
  4. Dehydrated alcohol solution [Concomitant]
     Indication: Product used for unknown indication
  5. DEVICE [Concomitant]
     Active Substance: DEVICE
     Indication: Product used for unknown indication
     Route: 047
  6. PREDNISOLONE [Concomitant]
     Active Substance: PREDNISOLONE
     Indication: Product used for unknown indication
     Dosage: 4 TIMES A DAY FOR FIRST 4 DAYS POSTOPERATIVE IN THE RIGHT EYE
     Route: 047
  7. PREDNISOLONE [Concomitant]
     Active Substance: PREDNISOLONE
     Dosage: POSTOPERATIVE DAY 4, PREDNISOLONE WAS INCREASED TO HOURLY DOSING WHILE AWAKE IN THE RIGHT EYE
     Route: 047
  8. MOXIFLOXACIN [Concomitant]
     Active Substance: MOXIFLOXACIN
     Indication: Product used for unknown indication
     Dosage: 4 TIMES A DAY IN THE RIGHT EYE
     Route: 047
  9. Collagen plug [Concomitant]
     Indication: Product used for unknown indication
     Route: 047
  10. LIPITOR [Concomitant]
     Active Substance: ATORVASTATIN CALCIUM
     Indication: Product used for unknown indication
  11. METOPROLOL [Concomitant]
     Active Substance: METOPROLOL
     Indication: Product used for unknown indication
  12. SYNTHROID [Concomitant]
     Active Substance: LEVOTHYROXINE SODIUM
     Indication: Product used for unknown indication
  13. ASPIRIN [Concomitant]
     Active Substance: ASPIRIN
     Indication: Product used for unknown indication
  14. VITAMIN D [Concomitant]
     Active Substance: VITAMIN D NOS
     Indication: Product used for unknown indication
  15. PRILOSEC [Concomitant]
     Active Substance: OMEPRAZOLE MAGNESIUM
     Indication: Product used for unknown indication
  16. CLARITIN [Concomitant]
     Active Substance: LORATADINE
     Indication: Product used for unknown indication

REACTIONS (7)
  - Diffuse lamellar keratitis [Recovered/Resolved with Sequelae]
  - Corneal flap complication [Recovered/Resolved with Sequelae]
  - Infective keratitis [Recovered/Resolved]
  - Photophobia [Recovered/Resolved]
  - Visual impairment [Recovered/Resolved with Sequelae]
  - Visual acuity reduced [Not Recovered/Not Resolved]
  - Corneal opacity [Not Recovered/Not Resolved]

NARRATIVE: CASE EVENT DATE: 20190917
